FAERS Safety Report 6315863-2 (Version None)
Quarter: 2009Q3

REPORT INFORMATION
  Report Type: 
  Country: None (occurrence: None)
  Receive Date: 20090820
  Receipt Date: 20070724
  Transmission Date: 20100115
  Serious: Yes (Other)
  Sender: FDA-Public Use
  Company Number: US-ASTRAZENECA-2007UW02008

PATIENT
  Age: 46 Year
  Sex: Female
  Weight: 118.8 kg

DRUGS (16)
  1. SEROQUEL [Suspect]
     Indication: SCHIZOPHRENIA
     Route: 048
     Dates: start: 19970101
  2. SEROQUEL [Suspect]
     Route: 048
     Dates: start: 20011211
  3. GEODON [Concomitant]
     Dates: start: 20050101
  4. RISPERDAL [Concomitant]
     Dates: start: 19980101
  5. ZYPREXA [Concomitant]
     Dates: start: 19980101, end: 19990101
  6. ALBUTEROL [Concomitant]
  7. WELLBUTRIN [Concomitant]
     Dates: start: 20020806
  8. PRILOSEC [Concomitant]
     Dates: start: 20020823
  9. ALTACE [Concomitant]
     Dates: start: 20020823
  10. ADVAIR HFA [Concomitant]
     Dosage: 250 / 50 1 PUFF TWO TIMES A DAY
     Dates: start: 20021205
  11. EFFEXOR [Concomitant]
     Dates: start: 20011211
  12. CELEBREX [Concomitant]
     Dates: start: 20011211
  13. NAPROXEN [Concomitant]
     Dosage: AS REQUIRED
     Dates: start: 20020823
  14. CLOBETASOL PROPIONATE [Concomitant]
     Dosage: TWO TIMES A DAY, TWO WEEK ON, TWO WEEK OFF
     Dates: start: 20040915
  15. GLUCOPHAGE [Concomitant]
     Route: 048
     Dates: start: 20020823
  16. AVANDIA [Concomitant]
     Dates: start: 20020823

REACTIONS (13)
  - BLOOD CHOLESTEROL INCREASED [None]
  - BRONCHITIS [None]
  - CHEST DISCOMFORT [None]
  - CHEST PAIN [None]
  - COUGH [None]
  - DIABETIC NEUROPATHY [None]
  - DYSPEPSIA [None]
  - FATIGUE [None]
  - FOOT DEFORMITY [None]
  - HYSTERECTOMY [None]
  - OBESITY [None]
  - TYPE 2 DIABETES MELLITUS [None]
  - VISION BLURRED [None]
